FAERS Safety Report 12398910 (Version 2)
Quarter: 2016Q4

REPORT INFORMATION
  Report Type: Report from Study
  Country: CA (occurrence: CA)
  Receive Date: 20160524
  Receipt Date: 20161018
  Transmission Date: 20170207
  Serious: Yes (Other)
  Sender: FDA-Public Use
  Company Number: PHHY2016CA071606

PATIENT
  Age: 29 Year
  Sex: Male

DRUGS (1)
  1. GILENYA [Suspect]
     Active Substance: FINGOLIMOD HYDROCHLORIDE
     Indication: RELAPSING-REMITTING MULTIPLE SCLEROSIS
     Dosage: 0.5 MG, QD
     Route: 048
     Dates: start: 20160510

REACTIONS (4)
  - Blood pressure increased [Unknown]
  - Multiple sclerosis relapse [Not Recovered/Not Resolved]
  - Urinary incontinence [Unknown]
  - Urinary retention [Unknown]

NARRATIVE: CASE EVENT DATE: 20160530
